FAERS Safety Report 21239302 (Version 1)
Quarter: 2022Q3

REPORT INFORMATION
  Report Type: Spontaneous
  Country: US (occurrence: None)
  Receive Date: 20220819
  Receipt Date: 20220819
  Transmission Date: 20221027
  Serious: No
  Sender: FDA-Public Use
  Company Number: None

PATIENT
  Sex: Female
  Weight: 86.85 kg

DRUGS (8)
  1. CLOBETASOL PROPIONATE [Suspect]
     Active Substance: CLOBETASOL PROPIONATE
     Indication: Skin irritation
     Dosage: FREQUENCY : DAILY;?
     Route: 061
     Dates: start: 20220615
  2. HYDROCHLOROTHIAZIDE [Concomitant]
     Active Substance: HYDROCHLOROTHIAZIDE
  3. METFORMIN [Concomitant]
     Active Substance: METFORMIN HYDROCHLORIDE
  4. GLIPIZIDE [Concomitant]
     Active Substance: GLIPIZIDE
  5. VALIUM [Concomitant]
     Active Substance: DIAZEPAM
  6. ASPIRIN [Concomitant]
     Active Substance: ASPIRIN
  7. AZO Bladder Control [Concomitant]
  8. Tera Tears eye drops [Concomitant]

REACTIONS (1)
  - Hair colour changes [None]
